FAERS Safety Report 15158393 (Version 1)
Quarter: 2018Q3

REPORT INFORMATION
  Report Type: Spontaneous
  Country: DE (occurrence: DE)
  Receive Date: 20180718
  Receipt Date: 20180718
  Transmission Date: 20181010
  Serious: Yes (Other)
  Sender: FDA-Public Use
  Company Number: DE-WEST-WARD PHARMACEUTICALS CORP.-DE-H14001-18-05636

PATIENT
  Age: 50 Year
  Sex: Female
  Weight: 68 kg

DRUGS (26)
  1. CAPECITABINE. [Suspect]
     Active Substance: CAPECITABINE
     Indication: PRODUCT USED FOR UNKNOWN INDICATION
     Route: 048
     Dates: start: 20151119, end: 20151202
  2. PARACODEINE [Concomitant]
     Indication: COUGH
     Route: 048
     Dates: start: 20150528, end: 20150618
  3. BEVACIZUMAB. [Suspect]
     Active Substance: BEVACIZUMAB
     Dosage: THE LAST DOSE OF AVASTIN PRIOR TO THE EVENT LOWER LEG THROMBOSIS ON THE RIGHT SIDE WAS RECEIVED ON 0
     Route: 042
     Dates: start: 20151119
  4. CIPRO [Concomitant]
     Active Substance: CIPROFLOXACIN HYDROCHLORIDE
     Indication: COUGH
     Route: 048
     Dates: start: 20150614, end: 20150618
  5. ACC [Concomitant]
     Active Substance: ACETYLCYSTEINE
     Indication: COUGH
     Route: 048
     Dates: start: 20150316, end: 20150319
  6. IBUPROFEN. [Concomitant]
     Active Substance: IBUPROFEN
     Indication: BACK PAIN
     Route: 048
     Dates: start: 20150319
  7. PACLITAXEL. [Suspect]
     Active Substance: PACLITAXEL
     Dosage: FREQUENCY? WEEKS
     Route: 042
     Dates: start: 20150409
  8. PACLITAXEL. [Suspect]
     Active Substance: PACLITAXEL
     Dosage: FREQUENCY? WEEKS
     Route: 042
     Dates: start: 20150424
  9. PARACODEINE [Concomitant]
     Indication: BACK PAIN
     Route: 065
  10. NOVAMINSULFON [Concomitant]
     Active Substance: METAMIZOLE
     Indication: PAIN
     Route: 048
     Dates: start: 20150825
  11. CAPECITABINE. [Suspect]
     Active Substance: CAPECITABINE
     Route: 048
     Dates: start: 20150716, end: 20150729
  12. PACLITAXEL. [Suspect]
     Active Substance: PACLITAXEL
     Dosage: FREQUENCY? WEEKS
     Route: 042
     Dates: start: 20150515
  13. PACLITAXEL. [Suspect]
     Active Substance: PACLITAXEL
     Dosage: FREQUENCY? WEEKS
     Route: 042
     Dates: start: 20150528
  14. PACLITAXEL. [Suspect]
     Active Substance: PACLITAXEL
     Dosage: FREQUENCY? WEEKS
     Route: 042
     Dates: start: 20150618
  15. PACLITAXEL. [Suspect]
     Active Substance: PACLITAXEL
     Dosage: FREQUENCY? WEEKS
     Route: 042
     Dates: start: 20150611
  16. PACLITAXEL. [Suspect]
     Active Substance: PACLITAXEL
     Indication: BREAST CANCER
     Dosage: FREQUENCY? WEEKS
     Route: 042
     Dates: start: 20150312
  17. PACLITAXEL. [Suspect]
     Active Substance: PACLITAXEL
     Dosage: FREQUENCY? WEEKS
     Route: 042
     Dates: start: 20150326
  18. BEVACIZUMAB. [Suspect]
     Active Substance: BEVACIZUMAB
     Indication: BREAST CANCER
     Dosage: THE LAST DOSE OF AVASTIN PRIOR TO THE EVENT LOWER LEG THROMBOSIS ON THE RIGHT SIDE WAS RECEIVED ON 0
     Route: 042
     Dates: start: 20150409
  19. CIPRO [Concomitant]
     Active Substance: CIPROFLOXACIN HYDROCHLORIDE
     Indication: PYREXIA
     Route: 048
     Dates: start: 20150402, end: 20150406
  20. CIPRO [Concomitant]
     Active Substance: CIPROFLOXACIN HYDROCHLORIDE
     Indication: COUGH
     Route: 048
     Dates: start: 20150528, end: 20150601
  21. DICLAC [Concomitant]
     Active Substance: DICLOFENAC
     Indication: PAIN
     Route: 065
     Dates: start: 20151108, end: 20151119
  22. PACLITAXEL. [Suspect]
     Active Substance: PACLITAXEL
     Dosage: FREQUENCY? WEEKS
     Route: 042
     Dates: start: 20150416
  23. PACLITAXEL. [Suspect]
     Active Substance: PACLITAXEL
     Dosage: FREQUENCY? WEEKS
     Route: 042
     Dates: start: 20150507
  24. LEVOFLOXACIN. [Concomitant]
     Active Substance: LEVOFLOXACIN
     Indication: PRODUCT USED FOR UNKNOWN INDICATION
     Route: 048
     Dates: start: 20150825, end: 20150901
  25. PACLITAXEL. [Suspect]
     Active Substance: PACLITAXEL
     Dosage: FREQUENCY? WEEKS
     Route: 042
     Dates: start: 20150319
  26. PACLITAXEL. [Suspect]
     Active Substance: PACLITAXEL
     Dosage: FREQUENCY? WEEKS
     Route: 042
     Dates: start: 20150625

REACTIONS (7)
  - Hypothyroidism [Unknown]
  - Alopecia [Unknown]
  - Thrombosis [Recovered/Resolved]
  - Abdominal pain upper [Recovered/Resolved]
  - Dyspnoea [Unknown]
  - Fatigue [Unknown]
  - Chest discomfort [Recovered/Resolved]

NARRATIVE: CASE EVENT DATE: 20150416
